FAERS Safety Report 8828767 (Version 1)
Quarter: 2012Q4

REPORT INFORMATION
  Report Type: 
  Country: AR (occurrence: AR)
  Receive Date: 20121008
  Receipt Date: 20121008
  Transmission Date: 20130627
  Serious: Yes (Other)
  Sender: FDA-Public Use
  Company Number: AR-BAYER-2012-101298

PATIENT
  Age: 51 Year
  Sex: Male

DRUGS (1)
  1. ACETYLSALICYLIC ACID (} 100 MG) [Suspect]

REACTIONS (6)
  - Asthma [Unknown]
  - Bronchospasm [Unknown]
  - Angioedema [Unknown]
  - Sinus polyp [Unknown]
  - Eosinophilia [Unknown]
  - Conjunctivitis [Unknown]
